FAERS Safety Report 19847332 (Version 1)
Quarter: 2021Q3

REPORT INFORMATION
  Report Type: Spontaneous
  Country: CZ (occurrence: CZ)
  Receive Date: 20210917
  Receipt Date: 20210917
  Transmission Date: 20211014
  Serious: Yes (Death, Other)
  Sender: FDA-Public Use
  Company Number: CZ-PFIZER INC-202101157945

PATIENT
  Age: 39 Year
  Sex: Male

DRUGS (3)
  1. ALPRAZOLAM. [Suspect]
     Active Substance: ALPRAZOLAM
     Dosage: UNK
  2. ZOLPIDEM [Suspect]
     Active Substance: ZOLPIDEM TARTRATE
     Dosage: UNK
  3. DROTAVERINE HYDROCHLORIDE [Suspect]
     Active Substance: DROTAVERINE HYDROCHLORIDE
     Dosage: UNK

REACTIONS (3)
  - Intentional product misuse [Fatal]
  - Drug level increased [Fatal]
  - Overdose [Fatal]
